FAERS Safety Report 8980189 (Version 1)
Quarter: 2012Q4

REPORT INFORMATION
  Report Type: 
  Country: US (occurrence: US)
  Receive Date: 20121221
  Receipt Date: 20121221
  Transmission Date: 20130627
  Serious: Yes (Other)
  Sender: FDA-Public Use
  Company Number: US-ROCHE-782843

PATIENT
  Sex: Male
  Weight: 79.45 kg

DRUGS (8)
  1. ACCUTANE [Suspect]
     Indication: ACNE
     Route: 065
  2. ACCUTANE [Suspect]
     Route: 065
  3. ACCUTANE [Suspect]
     Route: 065
     Dates: start: 2004, end: 2005
  4. CLARAVIS [Suspect]
     Indication: ACNE
     Dosage: 40 mg
     Route: 065
     Dates: start: 200405, end: 200406
  5. CLARAVIS [Suspect]
     Route: 065
     Dates: start: 200408, end: 200410
  6. CLARAVIS [Suspect]
     Route: 065
  7. CLARAVIS [Suspect]
     Route: 065
  8. VIGAMOX [Concomitant]

REACTIONS (4)
  - Colitis ulcerative [Unknown]
  - Crohn^s disease [Unknown]
  - Inflammatory bowel disease [Unknown]
  - Stress [Unknown]
